FAERS Safety Report 14565863 (Version 2)
Quarter: 2018Q1

REPORT INFORMATION
  Report Type: Spontaneous
  Country: GB (occurrence: GB)
  Receive Date: 20180223
  Receipt Date: 20180228
  Transmission Date: 20180509
  Serious: Yes (Other)
  Sender: FDA-Public Use
  Company Number: GB-AMGEN-GBRSP2018025090

PATIENT
  Age: 66 Year
  Sex: Male

DRUGS (3)
  1. ENBREL [Suspect]
     Active Substance: ETANERCEPT
     Indication: RHEUMATOID ARTHRITIS
     Dosage: UNK (3 DOSES)
     Route: 065
  2. PREDNISOLONE. [Concomitant]
     Active Substance: PREDNISOLONE
     Indication: RHEUMATOID ARTHRITIS
     Dosage: 10 MG, 1X/DAY
     Route: 065
  3. PREDNISOLONE. [Concomitant]
     Active Substance: PREDNISOLONE
     Dosage: 40 MG, UNK
     Route: 065

REACTIONS (1)
  - Pericardial effusion [Unknown]
